FAERS Safety Report 15035588 (Version 2)
Quarter: 2018Q3

REPORT INFORMATION
  Report Type: Spontaneous
  Country: US (occurrence: US)
  Receive Date: 20180620
  Receipt Date: 20180716
  Transmission Date: 20181010
  Serious: No
  Sender: FDA-Public Use
  Company Number: US-GLAXOSMITHKLINE-US2018107306

PATIENT
  Sex: Female

DRUGS (1)
  1. VENTOLIN HFA [Suspect]
     Active Substance: ALBUTEROL SULFATE
     Indication: WHEEZING
     Dosage: 2 PUFF(S), 1D
     Route: 055

REACTIONS (5)
  - Wrong technique in device usage process [Unknown]
  - Wheezing [Unknown]
  - Sleep disorder [Unknown]
  - Drug dose omission [Unknown]
  - Product quality issue [Unknown]
